FAERS Safety Report 25936967 (Version 1)
Quarter: 2025Q4

REPORT INFORMATION
  Report Type: Spontaneous
  Country: US (occurrence: US)
  Receive Date: 20251017
  Receipt Date: 20251017
  Transmission Date: 20260118
  Serious: No
  Sender: MERCK SHARP & DOHME LLC
  Company Number: US-009507513-2338673

PATIENT

DRUGS (2)
  1. IMIPENEM [Suspect]
     Active Substance: IMIPENEM
     Indication: Haematological infection
  2. MEROPENEM [Concomitant]
     Active Substance: MEROPENEM
     Indication: Haematological infection

REACTIONS (1)
  - Product use in unapproved indication [Unknown]
